FAERS Safety Report 7480989-7 (Version None)
Quarter: 2011Q2

REPORT INFORMATION
  Report Type: 
  Country: None (occurrence: None)
  Receive Date: 20110516
  Receipt Date: 20110509
  Transmission Date: 20111010
  Serious: Yes (Other)
  Sender: FDA-Public Use
  Company Number: IT-AMGEN-ITACT2011023918

PATIENT
  Age: 3 Year
  Sex: Male
  Weight: 11.5 kg

DRUGS (6)
  1. ERYTHROPOETIN [Concomitant]
     Dosage: 2000 UNIT, Q2WK
     Route: 058
  2. AMOXICILLIN [Concomitant]
     Dosage: 2.5 ML, QD
     Route: 048
  3. OXYBUTYNIN [Concomitant]
     Dosage: 2.5 UNK, UNK
     Route: 048
  4. CINACALCET HYDROCHLORIDE [Suspect]
     Indication: HYPERPARATHYROIDISM SECONDARY
     Dosage: 0.25 MG/KG, QD
     Dates: start: 20101206
  5. FERROUS SULFATE TAB [Concomitant]
     Dosage: 125 MG, QD
     Route: 048
  6. RANITIDINE [Concomitant]

REACTIONS (1)
  - LIVER FUNCTION TEST ABNORMAL [None]
